FAERS Safety Report 9094500 (Version 1)
Quarter: 2013Q1

REPORT INFORMATION
  Report Type: Spontaneous
  Country: US (occurrence: US)
  Receive Date: 20130219
  Receipt Date: 20130219
  Transmission Date: 20140127
  Serious: Yes (Life-Threatening, Other)
  Sender: FDA-Public Use
  Company Number: US-009507513-0812USA00887

PATIENT
  Age: 7 Year
  Sex: Female
  Weight: 22.68 kg

DRUGS (2)
  1. SINGULAIR [Suspect]
     Indication: ASTHMA PROPHYLAXIS
     Dosage: 5 MG, QD
     Route: 048
     Dates: start: 20080227, end: 20080326
  2. CLARITIN [Concomitant]
     Dosage: 4.5 MG, QD
     Dates: start: 20080227, end: 20080326

REACTIONS (11)
  - Obsessive-compulsive disorder [Recovering/Resolving]
  - Obsessive thoughts [Recovering/Resolving]
  - Middle insomnia [Recovering/Resolving]
  - Fear [Recovering/Resolving]
  - Crying [Recovering/Resolving]
  - Anxiety [Recovering/Resolving]
  - Paranoia [Recovering/Resolving]
  - Self esteem decreased [Recovering/Resolving]
  - Thinking abnormal [Recovering/Resolving]
  - Depression [Recovering/Resolving]
  - Poor quality sleep [Recovering/Resolving]
